FAERS Safety Report 8641246 (Version 2)
Quarter: 2013Q2

REPORT INFORMATION
  Report Type: Spontaneous
  Country: US (occurrence: US)
  Receive Date: 20120628
  Receipt Date: 20130628
  Transmission Date: 20140414
  Serious: Yes (Congenital Anomaly, Other)
  Sender: FDA-Public Use
  Company Number: US-PFIZER INC-2012153894

PATIENT
  Sex: Female

DRUGS (10)
  1. ZOLOFT [Suspect]
     Dosage: UNK
     Route: 064
     Dates: start: 2002, end: 2010
  2. ZOLOFT [Suspect]
     Dosage: 50 MG, 1X/DAY
     Route: 064
     Dates: start: 20030805
  3. CLOMIPHENE CITRATE [Concomitant]
     Dosage: 50 MG, 2X/DAY
     Route: 064
     Dates: start: 20030611
  4. EFFEXOR [Concomitant]
     Dosage: 75 MG, 1X/DAY
     Route: 064
     Dates: start: 20030701
  5. FOLIC ACID [Concomitant]
     Dosage: 1 MG, 1X/DAY
     Route: 064
     Dates: start: 20030803
  6. ACETAMINOPHEN W/CODEINE [Concomitant]
     Dosage: 1-2 TABLETS EVERY 6 HOURS AS NEEDED
     Route: 064
     Dates: start: 20031201
  7. MACROBID [Concomitant]
     Dosage: TWICE DAILY FOR 7 DAYS
     Route: 064
     Dates: start: 20040222
  8. VINATE II TABLETS [Concomitant]
     Dosage: UNK, 1X/DAY
     Route: 064
     Dates: start: 20040131
  9. PROCHIEVE 8% VAG GEL [Concomitant]
     Dosage: UNK, 1X/DAY
     Route: 064
     Dates: start: 20030726
  10. DUET TABLETS [Concomitant]
     Dosage: UNK, 1X/DAY
     Route: 064
     Dates: start: 20030829

REACTIONS (2)
  - Maternal exposure timing unspecified [Not Recovered/Not Resolved]
  - Cleft lip [Not Recovered/Not Resolved]
